FAERS Safety Report 11213441 (Version 4)
Quarter: 2016Q3

REPORT INFORMATION
  Report Type: Spontaneous
  Country: US (occurrence: US)
  Receive Date: 20150623
  Receipt Date: 20160926
  Transmission Date: 20161109
  Serious: Yes (Hospitalization, Other)
  Sender: FDA-Public Use
  Company Number: US-ELI_LILLY_AND_COMPANY-US201506006808

PATIENT
  Age: 82 Year
  Sex: Male
  Weight: 113.38 kg

DRUGS (12)
  1. ADVAIR HFA [Concomitant]
     Active Substance: FLUTICASONE PROPIONATE\SALMETEROL XINAFOATE
     Dosage: UNK, BID
     Route: 055
  2. AXIRON [Suspect]
     Active Substance: TESTOSTERONE
     Dosage: UNK, UNKNOWN
     Route: 061
     Dates: end: 2013
  3. FORTESTA [Suspect]
     Active Substance: TESTOSTERONE
     Indication: BLOOD TESTOSTERONE DECREASED
     Dosage: UNK, QD
     Route: 065
     Dates: start: 201211, end: 201212
  4. RAPAFLO [Concomitant]
     Active Substance: SILODOSIN
     Dosage: 8 MG, QD
     Route: 065
  5. SINGULAIR [Concomitant]
     Active Substance: MONTELUKAST SODIUM
     Indication: ASTHMA
     Dosage: 10 MG, QD
     Route: 065
     Dates: start: 2011
  6. AXIRON [Suspect]
     Active Substance: TESTOSTERONE
     Indication: BLOOD TESTOSTERONE DECREASED
     Dosage: 60 MG, QD
     Route: 061
     Dates: start: 2012
  7. PROVENTIL [Concomitant]
     Active Substance: ALBUTEROL
     Dosage: UNK, PRN
     Route: 055
  8. TESTOPEL [Suspect]
     Active Substance: TESTOSTERONE
     Indication: BLOOD TESTOSTERONE DECREASED
     Dosage: UNK UNK, EVERY FEW MONTHS
     Route: 065
     Dates: start: 20121112, end: 2013
  9. NORVASC [Concomitant]
     Active Substance: AMLODIPINE BESYLATE
     Indication: HYPERTENSION
     Dosage: 5 UNK, UNK
     Route: 048
  10. ASPIRIN                            /00002701/ [Concomitant]
     Active Substance: ASPIRIN
     Dosage: 81 MG, QD
     Route: 065
  11. AXIRON [Suspect]
     Active Substance: TESTOSTERONE
     Dosage: UNK, QD
     Route: 061
     Dates: start: 2013, end: 20141001
  12. AFRIN [Concomitant]
     Active Substance: OXYMETAZOLINE
     Dosage: UNK, PRN
     Route: 065

REACTIONS (5)
  - Asthenia [Not Recovered/Not Resolved]
  - Deep vein thrombosis [Not Recovered/Not Resolved]
  - Pulmonary embolism [Not Recovered/Not Resolved]
  - Deep vein thrombosis [Not Recovered/Not Resolved]
  - Blood testosterone increased [Unknown]

NARRATIVE: CASE EVENT DATE: 20130425
